FAERS Safety Report 9382252 (Version 4)
Quarter: 2014Q1

REPORT INFORMATION
  Report Type: Report from Study
  Country: SK (occurrence: SK)
  Receive Date: 20130703
  Receipt Date: 20140211
  Transmission Date: 20141002
  Serious: Yes (Life-Threatening, Hospitalization, Disabling)
  Sender: FDA-Public Use
  Company Number: SK-JNJFOC-20130701639

PATIENT
  Age: 59 Year
  Sex: Male
  Weight: 82 kg

DRUGS (2)
  1. USTEKINUMAB [Suspect]
     Indication: PSORIASIS
     Route: 058
     Dates: start: 20101119
  2. STEROIDS NOS [Concomitant]
     Route: 061

REACTIONS (2)
  - Basal ganglia stroke [Recovered/Resolved with Sequelae]
  - Ankle fracture [Unknown]
